FAERS Safety Report 22684016 (Version 2)
Quarter: 2024Q3

REPORT INFORMATION
  Report Type: Spontaneous
  Country: NO (occurrence: NO)
  Receive Date: 20230708
  Receipt Date: 20240802
  Transmission Date: 20241017
  Serious: Yes (Hospitalization, Congenital Anomaly, Other)
  Sender: NOVARTIS
  Company Number: NO-002147023-NVSC2023NO149556

PATIENT
  Sex: Male

DRUGS (1)
  1. CARBAMAZEPINE [Suspect]
     Active Substance: CARBAMAZEPINE
     Indication: Foetal exposure during pregnancy
     Dosage: MATERNAL EXPOSURE DURING PREGNANCY
     Route: 064

REACTIONS (9)
  - Neonatal hypoxia [Unknown]
  - Infantile apnoea [Unknown]
  - Hypotonia neonatal [Unknown]
  - Laryngeal cleft [Unknown]
  - Foetal macrosomia [Unknown]
  - Motor developmental delay [Unknown]
  - Autism spectrum disorder [Unknown]
  - Epilepsy [Recovered/Resolved]
  - Foetal exposure during pregnancy [Unknown]
